FAERS Safety Report 13939858 (Version 1)
Quarter: 2017Q3

REPORT INFORMATION
  Report Type: Spontaneous
  Country: JP (occurrence: JP)
  Receive Date: 20170906
  Receipt Date: 20170906
  Transmission Date: 20171127
  Serious: Yes (Other)
  Sender: FDA-Public Use
  Company Number: JP-ROCHE-1989833

PATIENT

DRUGS (1)
  1. LUCENTIS [Suspect]
     Active Substance: RANIBIZUMAB
     Indication: POLYPOIDAL CHOROIDAL VASCULOPATHY
     Dosage: UNK
     Route: 031

REACTIONS (3)
  - Vitreous haemorrhage [Unknown]
  - Retinal haemorrhage [Unknown]
  - Polypoidal choroidal vasculopathy [Unknown]

NARRATIVE: CASE EVENT DATE: 20170901
